FAERS Safety Report 13033024 (Version 1)
Quarter: 2016Q4

REPORT INFORMATION
  Report Type: Spontaneous
  Country: US (occurrence: US)
  Receive Date: 20161215
  Receipt Date: 20161215
  Transmission Date: 20170207
  Serious: No
  Sender: FDA-Public Use
  Company Number: US-ASTRAZENECA-2016SF29122

PATIENT
  Age: 59 Year
  Sex: Male
  Weight: 104.3 kg

DRUGS (8)
  1. LUTEIN [Concomitant]
     Active Substance: LUTEIN
     Indication: SUPPLEMENTATION THERAPY
     Route: 048
  2. FISH OIL [Concomitant]
     Active Substance: FISH OIL
     Indication: SUPPLEMENTATION THERAPY
     Route: 048
  3. BABY ASPIRIN [Concomitant]
     Active Substance: ASPIRIN
     Indication: PROPHYLAXIS
     Route: 048
  4. CRESTOR [Suspect]
     Active Substance: ROSUVASTATIN CALCIUM
     Indication: BLOOD CHOLESTEROL ABNORMAL
     Route: 048
  5. FINASTERIDE. [Concomitant]
     Active Substance: FINASTERIDE
     Indication: HAIR GROWTH ABNORMAL
     Route: 048
  6. DHEA [Concomitant]
     Active Substance: PRASTERONE
     Indication: ROUTINE HEALTH MAINTENANCE
     Route: 048
  7. MULTIVITAMIN [Concomitant]
     Active Substance: VITAMINS
     Indication: VITAMIN SUPPLEMENTATION
     Dosage: TWO TIMES A DAY
     Route: 048
  8. CINNAMON BARK [Concomitant]
     Indication: BLOOD GLUCOSE ABNORMAL
     Route: 048

REACTIONS (2)
  - High density lipoprotein decreased [Unknown]
  - Benign hepatic neoplasm [Unknown]

NARRATIVE: CASE EVENT DATE: 2013
